FAERS Safety Report 22635638 (Version 4)
Quarter: 2024Q1

REPORT INFORMATION
  Report Type: Report from Study
  Country: US (occurrence: US)
  Receive Date: 20230623
  Receipt Date: 20240314
  Transmission Date: 20240410
  Serious: Yes (Other)
  Sender: FDA-Public Use
  Company Number: US-ARGENX-2023-ARGX-US002021AA

PATIENT

DRUGS (1)
  1. VYVGART [Suspect]
     Active Substance: EFGARTIGIMOD ALFA-FCAB
     Indication: Product used for unknown indication
     Dosage: UNK
     Route: 042

REACTIONS (7)
  - Malignant melanoma [Unknown]
  - Myasthenia gravis [Unknown]
  - Treatment delayed [Unknown]
  - Malaise [Recovering/Resolving]
  - Depression [Unknown]
  - Polyneuropathy [Unknown]
  - Therapy cessation [Unknown]
